FAERS Safety Report 18550303 (Version 2)
Quarter: 2020Q4

REPORT INFORMATION
  Report Type: Spontaneous
  Country: JP (occurrence: JP)
  Receive Date: 20201126
  Receipt Date: 20201218
  Transmission Date: 20210114
  Serious: Yes (Hospitalization)
  Sender: FDA-Public Use
  Company Number: JP-009507513-2011JPN002199J

PATIENT
  Age: 53 Year
  Sex: Female

DRUGS (1)
  1. REFLEX [Suspect]
     Active Substance: MIRTAZAPINE
     Indication: SOMATIC SYMPTOM DISORDER
     Dosage: UNK
     Route: 048

REACTIONS (6)
  - Cardiomegaly [Unknown]
  - Weight increased [Unknown]
  - Brain natriuretic peptide increased [Unknown]
  - Oedema peripheral [Unknown]
  - Salt craving [Recovering/Resolving]
  - Increased appetite [Recovering/Resolving]
